FAERS Safety Report 8165311-5 (Version None)
Quarter: 2012Q1

REPORT INFORMATION
  Report Type: 
  Country: None (occurrence: None)
  Receive Date: 20120223
  Receipt Date: 20120223
  Transmission Date: 20120608
  Serious: Yes (Disabling)
  Sender: FDA-Public Use
  Company Number: None

PATIENT
  Age: 63 Year
  Sex: Female
  Weight: 72.7 kg

DRUGS (1)
  1. ZICAM NO-DRIP LIQUID NASAL GEL ZINCUM GLUCINICUM 2X MATRIXX INITIATIVE [Suspect]

REACTIONS (1)
  - ANOSMIA [None]
